FAERS Safety Report 16353913 (Version 1)
Quarter: 2019Q2

REPORT INFORMATION
  Report Type: Report from Study
  Country: GB (occurrence: GB)
  Receive Date: 20190524
  Receipt Date: 20190524
  Transmission Date: 20190711
  Serious: Yes (Other)
  Sender: FDA-Public Use
  Company Number: GB-MYLANLABS-2019M1048197

PATIENT
  Age: 59 Year

DRUGS (1)
  1. TRAMADOL. [Suspect]
     Active Substance: TRAMADOL
     Indication: PAIN
     Dosage: UNK

REACTIONS (3)
  - Dependence [Unknown]
  - Drug withdrawal syndrome [Unknown]
  - Drug ineffective [Unknown]
